FAERS Safety Report 5129555-9 (Version None)
Quarter: 2006Q4

REPORT INFORMATION
  Report Type: 
  Country: None (occurrence: None)
  Receive Date: 20061012
  Receipt Date: 20060929
  Transmission Date: 20070319
  Serious: Yes (Hospitalization, Other)
  Sender: FDA-Public Use
  Company Number: 2006118391

PATIENT
  Age: 45 Year
  Sex: Male
  Weight: 56.6996 kg

DRUGS (2)
  1. LYRICA [Suspect]
     Indication: ARTHRALGIA
     Dosage: 150 MG (75 MG, 2 IN 1 D)
     Dates: start: 20060822, end: 20060823
  2. AMITRIPTYLINE HCL [Suspect]
     Indication: DRUG USE FOR UNKNOWN INDICATION
     Dosage: 10 MG (10 MG, BEDTIME)
     Dates: start: 20060822, end: 20060822

REACTIONS (23)
  - APHAGIA [None]
  - ASPIRATION [None]
  - BRADYKINESIA [None]
  - CONFUSIONAL STATE [None]
  - DIZZINESS [None]
  - DYSKINESIA [None]
  - DYSPNOEA [None]
  - EYE IRRITATION [None]
  - EYE SWELLING [None]
  - FEELING ABNORMAL [None]
  - GAIT DISTURBANCE [None]
  - HEADACHE [None]
  - HYPOAESTHESIA [None]
  - HYPOVENTILATION [None]
  - INSOMNIA [None]
  - LACRIMATION INCREASED [None]
  - LETHARGY [None]
  - LOSS OF CONSCIOUSNESS [None]
  - MUSCLE TWITCHING [None]
  - PULSE PRESSURE DECREASED [None]
  - RESPIRATORY ARREST [None]
  - VISION BLURRED [None]
  - VISUAL DISTURBANCE [None]
